FAERS Safety Report 19635696 (Version 1)
Quarter: 2021Q3

REPORT INFORMATION
  Report Type: Spontaneous
  Country: CN (occurrence: CN)
  Receive Date: 20210729
  Receipt Date: 20210729
  Transmission Date: 20211014
  Serious: Yes (Other)
  Sender: FDA-Public Use
  Company Number: CN-PFIZER INC-2021895106

PATIENT
  Age: 52 Year
  Sex: Female
  Weight: 60 kg

DRUGS (2)
  1. ANZATAX (PACLITAXEL) [Suspect]
     Active Substance: PACLITAXEL
     Indication: SQUAMOUS CELL CARCINOMA OF THE CERVIX
     Dosage: 30 MG, UNSPECIFIED FREQUENCY
     Route: 041
     Dates: start: 20210707, end: 20210707
  2. GLUCOSE [Concomitant]
     Active Substance: DEXTROSE
     Dosage: 250 MG

REACTIONS (3)
  - Palpitations [Recovering/Resolving]
  - Off label use [Unknown]
  - Chest discomfort [Recovering/Resolving]

NARRATIVE: CASE EVENT DATE: 20210707
